FAERS Safety Report 13609239 (Version 1)
Quarter: 2017Q2

REPORT INFORMATION
  Report Type: Report from Study
  Country: JP (occurrence: JP)
  Receive Date: 20170602
  Receipt Date: 20170602
  Transmission Date: 20170830
  Serious: Yes (Death, Hospitalization, Disabling, Other)
  Sender: FDA-Public Use
  Company Number: PHHY2015JP128503

PATIENT
  Sex: Male

DRUGS (26)
  1. OFATUMUMAB [Suspect]
     Active Substance: OFATUMUMAB
     Dosage: 2000 MG, UNK
     Route: 041
     Dates: start: 20141215, end: 20141215
  2. OFATUMUMAB [Suspect]
     Active Substance: OFATUMUMAB
     Dosage: 2000 MG, UNK
     Route: 041
     Dates: start: 20141229, end: 20141229
  3. OFATUMUMAB [Suspect]
     Active Substance: OFATUMUMAB
     Dosage: 2000 MG, UNK
     Route: 041
     Dates: start: 20150106, end: 20150106
  4. CALADRYL (DIPHENHYDRAMINE HCL) [Concomitant]
     Dosage: 10 MG, UNK
     Route: 065
     Dates: start: 20141222, end: 20141222
  5. PREDNISOLONE. [Concomitant]
     Active Substance: PREDNISOLONE
     Dosage: 125 MG, UNK
     Route: 065
     Dates: start: 20141222, end: 20141222
  6. BAKTAR [Concomitant]
     Active Substance: SULFAMETHOXAZOLE\TRIMETHOPRIM
     Indication: INFECTION PROPHYLAXIS
     Dosage: 4 DF, UNK
     Route: 048
  7. OFATUMUMAB [Suspect]
     Active Substance: OFATUMUMAB
     Indication: CHRONIC LYMPHOCYTIC LEUKAEMIA
     Dosage: 300 MG, UNK
     Route: 041
     Dates: start: 20141201, end: 20141201
  8. OFATUMUMAB [Suspect]
     Active Substance: OFATUMUMAB
     Dosage: 2000 MG, UNK
     Route: 041
     Dates: start: 20141222, end: 20141222
  9. PREDNISOLONE. [Concomitant]
     Active Substance: PREDNISOLONE
     Dosage: 125 MG, UNK
     Route: 065
     Dates: start: 20141229, end: 20141229
  10. CALADRYL (DIPHENHYDRAMINE HCL) [Concomitant]
     Dosage: 10 MG, UNK
     Route: 065
     Dates: start: 20141215, end: 20141215
  11. PREDNISOLONE. [Concomitant]
     Active Substance: PREDNISOLONE
     Dosage: 125 MG, UNK
     Route: 065
     Dates: start: 20150106, end: 20150106
  12. SOLU-MEDROL [Concomitant]
     Active Substance: METHYLPREDNISOLONE SODIUM SUCCINATE
     Indication: PRODUCT USED FOR UNKNOWN INDICATION
     Dosage: 125 MG, UNK
     Route: 065
     Dates: start: 20141201, end: 20141201
  13. CALADRYL (DIPHENHYDRAMINE HCL) [Concomitant]
     Dosage: 10 MG, UNK
     Route: 065
     Dates: start: 20141208, end: 20141208
  14. PREDNISOLONE. [Concomitant]
     Active Substance: PREDNISOLONE
     Indication: PRODUCT USED FOR UNKNOWN INDICATION
     Dosage: 125 MG, UNK
     Route: 065
     Dates: start: 20141208, end: 20141208
  15. CALADRYL (DIPHENHYDRAMINE HCL) [Concomitant]
     Dosage: 10 MG, UNK
     Route: 065
     Dates: start: 20141229, end: 20141229
  16. PREDNISOLONE. [Concomitant]
     Active Substance: PREDNISOLONE
     Dosage: 125 MG, UNK
     Route: 065
     Dates: start: 20141215, end: 20141215
  17. PREDNISOLONE. [Concomitant]
     Active Substance: PREDNISOLONE
     Dosage: 125 MG, UNK
     Route: 065
     Dates: start: 20150113, end: 20150113
  18. ITRIZOLE [Concomitant]
     Active Substance: ITRACONAZOLE
     Indication: INFECTION PROPHYLAXIS
     Dosage: 20 ML, UNK
     Route: 048
  19. OFATUMUMAB [Suspect]
     Active Substance: OFATUMUMAB
     Dosage: 2000 MG, UNK
     Route: 041
     Dates: start: 20150120, end: 20150120
  20. CALADRYL (DIPHENHYDRAMINE HCL) [Concomitant]
     Indication: PRODUCT USED FOR UNKNOWN INDICATION
     Dosage: 10 MG, UNK
     Route: 065
     Dates: start: 20141201, end: 20141201
  21. CALADRYL (DIPHENHYDRAMINE HCL) [Concomitant]
     Dosage: 10 MG, UNK
     Route: 065
     Dates: start: 20150106, end: 20150106
  22. CALADRYL (DIPHENHYDRAMINE HCL) [Concomitant]
     Dosage: 10 MG, UNK
     Route: 065
     Dates: start: 20150113, end: 20150113
  23. CALADRYL (DIPHENHYDRAMINE HCL) [Concomitant]
     Dosage: 10 MG, UNK
     Route: 065
     Dates: start: 20150120, end: 20150120
  24. OFATUMUMAB [Suspect]
     Active Substance: OFATUMUMAB
     Dosage: 2000 MG, UNK
     Route: 041
     Dates: start: 20141208, end: 20141208
  25. OFATUMUMAB [Suspect]
     Active Substance: OFATUMUMAB
     Dosage: 2000 MG, UNK
     Route: 041
     Dates: start: 20150113, end: 20150113
  26. PREDNISOLONE. [Concomitant]
     Active Substance: PREDNISOLONE
     Dosage: 125 MG, UNK
     Route: 065
     Dates: start: 20150120, end: 20150120

REACTIONS (6)
  - Sepsis [Fatal]
  - Malignant neoplasm progression [Fatal]
  - White blood cell count decreased [Not Recovered/Not Resolved]
  - Sepsis [Recovered/Resolved]
  - Gastrointestinal haemorrhage [Fatal]
  - Chronic lymphocytic leukaemia [Fatal]

NARRATIVE: CASE EVENT DATE: 20141208
